FAERS Safety Report 11568658 (Version 1)
Quarter: 2015Q3

REPORT INFORMATION
  Report Type: Spontaneous
  Country: US (occurrence: None)
  Receive Date: 20150928
  Receipt Date: 20150928
  Transmission Date: 20151125
  Serious: Yes (Hospitalization)
  Sender: FDA-Public Use
  Company Number: None

PATIENT
  Age: 30 Year
  Sex: Female
  Weight: 69.5 kg

DRUGS (6)
  1. CLARITHROMYCIN. [Concomitant]
     Active Substance: CLARITHROMYCIN
  2. CEFOXITIN [Suspect]
     Active Substance: CEFOXITIN\CEFOXITIN SODIUM
     Indication: OSTEOMYELITIS
     Route: 042
     Dates: start: 20150914, end: 20150915
  3. SODIUM CHLORIDE 0.9% WET BAXTER [Suspect]
     Active Substance: SODIUM CHLORIDE
     Indication: OSTEOMYELITIS
     Route: 042
     Dates: start: 20150914, end: 20150914
  4. CEFOXITIN [Suspect]
     Active Substance: CEFOXITIN\CEFOXITIN SODIUM
     Indication: MYCOBACTERIUM ABSCESSUS INFECTION
     Route: 042
     Dates: start: 20150914, end: 20150915
  5. SODIUM CHLORIDE 0.9% WET BAXTER [Suspect]
     Active Substance: SODIUM CHLORIDE
     Indication: MYCOBACTERIUM ABSCESSUS INFECTION
     Route: 042
     Dates: start: 20150914, end: 20150914
  6. MULTIVITAMIN [Concomitant]
     Active Substance: VITAMINS

REACTIONS (5)
  - Pain [None]
  - Pain in extremity [None]
  - Product quality issue [None]
  - Back pain [None]
  - Headache [None]

NARRATIVE: CASE EVENT DATE: 20150923
